FAERS Safety Report 5014513-5 (Version None)
Quarter: 2006Q2

REPORT INFORMATION
  Report Type: 
  Country: None (occurrence: None)
  Receive Date: 20060531
  Receipt Date: 20060302
  Transmission Date: 20061013
  Serious: Yes (Hospitalization, Other)
  Sender: FDA-Public Use
  Company Number: PHEH2006US02833

PATIENT
  Age: 49 Year
  Sex: Female
  Weight: 69.841 kg

DRUGS (6)
  1. ZELNORM [Suspect]
     Indication: IRRITABLE BOWEL SYNDROME
     Dosage: 6 MG, BID
     Route: 048
     Dates: start: 20050801, end: 20060116
  2. PROTONIX [Concomitant]
     Dosage: 40 MG, BID
     Route: 048
  3. LOTREL [Concomitant]
     Dosage: 5/10 MG QD
     Route: 048
  4. LIBRAX [Concomitant]
     Dosage: UNK, BID
  5. LACTIC ACID BACTERIA [Concomitant]
     Dosage: UNK, QD
  6. CALCIUM GLUCONATE [Concomitant]
     Dosage: UNK, QD

REACTIONS (17)
  - ABDOMINAL DISTENSION [None]
  - ABDOMINAL PAIN LOWER [None]
  - ABDOMINAL TENDERNESS [None]
  - BLOOD GLUCOSE INCREASED [None]
  - COLITIS [None]
  - COLITIS ISCHAEMIC [None]
  - DIARRHOEA HAEMORRHAGIC [None]
  - DIZZINESS [None]
  - HAEMORRHOIDS [None]
  - HYPERHIDROSIS [None]
  - INTESTINAL POLYP [None]
  - INTESTINAL ULCER [None]
  - MUCOSAL INFLAMMATION [None]
  - OVARIAN CYST [None]
  - POLYPECTOMY [None]
  - RECTAL HAEMORRHAGE [None]
  - WHITE BLOOD CELL COUNT INCREASED [None]
